FAERS Safety Report 9895505 (Version 1)
Quarter: 2014Q1

REPORT INFORMATION
  Report Type: Spontaneous
  Country: US (occurrence: US)
  Receive Date: 20140213
  Receipt Date: 20140213
  Transmission Date: 20141002
  Serious: No
  Sender: FDA-Public Use
  Company Number: US-BRISTOL-MYERS SQUIBB COMPANY-19426212

PATIENT
  Age: 58 Year
  Sex: Female
  Weight: 68.03 kg

DRUGS (13)
  1. ABATACEPT SUBQ INJECTION 125MG/ML [Suspect]
     Dosage: 1 DF=125MG/ML?PFS (4 PACK)
     Route: 058
  2. CENTRUM [Concomitant]
     Dosage: TABS
  3. CALCIUM [Concomitant]
     Dosage: +D CHW
  4. IRON TABLETS [Concomitant]
  5. VITAMIN B12 [Concomitant]
     Dosage: TABS?1000 CR
  6. ARAVA [Concomitant]
     Dosage: 10 MG
  7. NEXIUM [Concomitant]
     Dosage: CAPS
  8. ASACOL [Concomitant]
     Dosage: TAB DR
  9. FOLIC ACID [Concomitant]
     Dosage: TABS
  10. ELESTAT [Concomitant]
     Dosage: DRO 0.05%
  11. ALLEGRA [Concomitant]
     Dosage: TAB
  12. ESTROGEN [Concomitant]
     Dosage: TAB
  13. PREDNISONE [Concomitant]
     Dosage: TABS

REACTIONS (4)
  - Feeling abnormal [Unknown]
  - Panic disorder [Unknown]
  - Crying [Unknown]
  - Oropharyngeal pain [Unknown]
